FAERS Safety Report 8867275 (Version 1)
Quarter: 2012Q4

REPORT INFORMATION
  Report Type: 
  Country: US (occurrence: US)
  Receive Date: 20121025
  Receipt Date: 20121025
  Transmission Date: 20130627
  Serious: No
  Sender: FDA-Public Use
  Company Number: US-AMGEN-USASP2012015905

PATIENT
  Age: 45 Year
  Sex: Female
  Weight: 90 kg

DRUGS (5)
  1. ENBREL [Suspect]
     Indication: PRODUCT USED FOR UNKNOWN INDICATION
     Dosage: 50 mg, qwk
     Route: 058
  2. MULTIVITAMIN                       /00097801/ [Concomitant]
  3. CALCIUM VITAMIN D [Concomitant]
  4. BIOTIN [Concomitant]
  5. VITAMIN D /00107901/ [Concomitant]

REACTIONS (1)
  - Viral infection [Unknown]
